FAERS Safety Report 19502130 (Version 1)
Quarter: 2021Q3

REPORT INFORMATION
  Report Type: Spontaneous
  Country: FR (occurrence: FR)
  Receive Date: 20210707
  Receipt Date: 20210707
  Transmission Date: 20211014
  Serious: Yes (Hospitalization, Congenital Anomaly)
  Sender: FDA-Public Use
  Company Number: FR-ACCORD-230713

PATIENT
  Age: 0 Year
  Sex: Female
  Weight: 3.12 kg

DRUGS (2)
  1. FLUOROURACIL. [Suspect]
     Active Substance: FLUOROURACIL
     Indication: COLON CANCER
     Route: 050
     Dates: start: 20171116, end: 20180419
  2. OXALIPLATIN. [Suspect]
     Active Substance: OXALIPLATIN
     Indication: COLON CANCER
     Dosage: 12 TREATMENTS 160 MG * 6, 145 * 2, 80 * 4
     Route: 050
     Dates: start: 20171116, end: 20180419

REACTIONS (1)
  - Cleft palate [Not Recovered/Not Resolved]

NARRATIVE: CASE EVENT DATE: 20210504
